FAERS Safety Report 5341958-6 (Version None)
Quarter: 2007Q2

REPORT INFORMATION
  Report Type: 
  Country: None (occurrence: None)
  Receive Date: 20070601
  Receipt Date: 20070521
  Transmission Date: 20071010
  Serious: Yes (Hospitalization)
  Sender: FDA-Public Use
  Company Number: HQWYE427126JUL04

PATIENT
  Sex: Female
  Weight: 46.31 kg

DRUGS (3)
  1. PREMARIN [Suspect]
  2. PROVERA [Suspect]
  3. PREMPHASE 14/14 [Suspect]

REACTIONS (2)
  - ARTERIAL THROMBOSIS LIMB [None]
  - MYOCARDIAL INFARCTION [None]
